FAERS Safety Report 8693215 (Version 2)
Quarter: 2012Q4

REPORT INFORMATION
  Report Type: 
  Country: FR (occurrence: FR)
  Receive Date: 20120730
  Receipt Date: 20120913
  Transmission Date: 20130627
  Serious: Yes (Hospitalization, Other)
  Sender: FDA-Public Use
  Company Number: FR-PFIZER INC-2012178143

PATIENT
  Age: 10 Year
  Sex: Female
  Weight: 29 kg

DRUGS (2)
  1. ADVIL ENFANTS ET NOURRISSONS [Suspect]
     Indication: HEADACHE
     Dosage: 300 mg, 4x/day
     Route: 048
     Dates: start: 20120622, end: 20120625
  2. ADVIL ENFANTS ET NOURRISSONS [Suspect]
     Indication: PYREXIA

REACTIONS (14)
  - IIIrd nerve disorder [Recovering/Resolving]
  - Infection [Recovering/Resolving]
  - Brain stem syndrome [Recovering/Resolving]
  - Hyporeflexia [Recovering/Resolving]
  - Inflammation [Recovering/Resolving]
  - Acute disseminated encephalomyelitis [Recovering/Resolving]
  - Behcet^s syndrome [Recovering/Resolving]
  - Multiple sclerosis [Recovering/Resolving]
  - Neuromyelitis optica [Recovering/Resolving]
  - Papilloedema [Recovering/Resolving]
  - Heart rate decreased [Recovering/Resolving]
  - Dysuria [Recovering/Resolving]
  - Somnolence [Recovering/Resolving]
  - Autonomic nervous system imbalance [Recovering/Resolving]
